FAERS Safety Report 12853553 (Version 1)
Quarter: 2016Q4

REPORT INFORMATION
  Report Type: Spontaneous
  Country: US (occurrence: US)
  Receive Date: 20161017
  Receipt Date: 20161017
  Transmission Date: 20170207
  Serious: No
  Sender: FDA-Public Use
  Company Number: US-WEST-WARD PHARMACEUTICALS CORP.-US-H14001-15-02193

PATIENT
  Age: 73 Year
  Sex: Female

DRUGS (1)
  1. DURAMORPH [Suspect]
     Active Substance: MORPHINE SULFATE
     Indication: SPINAL PAIN
     Dosage: 1.8124 MG - INCREASING TO 1.9655, 2.1749, AND 2.3270 MG
     Route: 037

REACTIONS (2)
  - Inadequate analgesia [Unknown]
  - Underdose [Unknown]

NARRATIVE: CASE EVENT DATE: 20151209
